FAERS Safety Report 7710353-4 (Version None)
Quarter: 2011Q3

REPORT INFORMATION
  Report Type: 
  Country: None (occurrence: None)
  Receive Date: 20110825
  Receipt Date: 20110708
  Transmission Date: 20111222
  Serious: No
  Sender: FDA-Public Use
  Company Number: US-MYLANLABS-2011S1013160

PATIENT
  Age: 79 Year
  Sex: Male

DRUGS (4)
  1. LORATADINE [Concomitant]
  2. LANSOPRAZOLE [Suspect]
     Indication: DYSPHAGIA
     Route: 048
     Dates: start: 20110618, end: 20110619
  3. LANSOPRAZOLE [Suspect]
     Indication: GASTROOESOPHAGEAL REFLUX DISEASE
     Route: 048
     Dates: start: 20110618, end: 20110619
  4. LANSOPRAZOLE [Suspect]
     Indication: HIATUS HERNIA
     Route: 048
     Dates: start: 20110618, end: 20110619

REACTIONS (5)
  - ASTHENIA [None]
  - RASH [None]
  - HYPERHIDROSIS [None]
  - BURNING SENSATION [None]
  - RASH MACULO-PAPULAR [None]
